FAERS Safety Report 13790754 (Version 1)
Quarter: 2017Q3

REPORT INFORMATION
  Report Type: Spontaneous
  Country: US (occurrence: US)
  Receive Date: 20170725
  Receipt Date: 20170725
  Transmission Date: 20171127
  Serious: No
  Sender: FDA-Public Use
  Company Number: US-GALDERMA-US17003429

PATIENT
  Sex: Female

DRUGS (3)
  1. CETAPHIL MOISTURIZING LOTION (DIFFERIN BALANCING MOISTURIZER) [Concomitant]
     Active Substance: COSMETICS
     Indication: PRODUCT USED FOR UNKNOWN INDICATION
     Route: 061
  2. DIFFERIN GEL [Suspect]
     Active Substance: ADAPALENE
     Indication: PRODUCT USED FOR UNKNOWN INDICATION
     Route: 061
  3. CETAPHIL GENTLE SKIN CLEANSER (DIFFERIN BALANCING CLEANSER) [Concomitant]
     Active Substance: COSMETICS
     Indication: PRODUCT USED FOR UNKNOWN INDICATION
     Route: 061

REACTIONS (2)
  - Skin fragility [Unknown]
  - Dry skin [Unknown]
